FAERS Safety Report 9616229 (Version 2)
Quarter: 2013Q4

REPORT INFORMATION
  Report Type: Spontaneous
  Country: US (occurrence: US)
  Receive Date: 20131011
  Receipt Date: 20131119
  Transmission Date: 20140711
  Serious: Yes (Other)
  Sender: FDA-Public Use
  Company Number: US-PFIZER INC-2013287814

PATIENT
  Age: 51 Year
  Sex: Male
  Weight: 181 kg

DRUGS (1)
  1. SUTENT [Suspect]
     Indication: RENAL CANCER
     Dosage: 50 MG, CYCLIC (DAILY 28 DAYS ON)
     Route: 048
     Dates: start: 20130220

REACTIONS (2)
  - Irritability [Unknown]
  - Abnormal behaviour [Unknown]
